FAERS Safety Report 9657988 (Version 2)
Quarter: 2014Q3

REPORT INFORMATION
  Report Type: Spontaneous
  Country: JP (occurrence: None)
  Receive Date: 20131029
  Receipt Date: 20140812
  Transmission Date: 20150326
  Serious: Yes (Death, Other)
  Sender: FDA-Public Use
  Company Number: ABR_01218_2013

PATIENT
  Age: 47 Year
  Sex: Male
  Weight: 67 kg

DRUGS (2)
  1. GLIADEL [Suspect]
     Active Substance: CARMUSTINE
     Indication: MALIGNANT GLIOMA
     Dosage: 8 DF, 61.6MG 1X INTRACEREBRAL)
     Dates: start: 20130613, end: 20130613
  2. AMINOLEVULANIC ACID HYDROCHLORIDE [Concomitant]

REACTIONS (5)
  - Fluid retention [None]
  - Incision site complication [None]
  - Impaired healing [None]
  - Cerebrospinal fluid retention [None]
  - Cerebrospinal fluid leakage [None]

NARRATIVE: CASE EVENT DATE: 20130705
